FAERS Safety Report 9220217 (Version 1)
Quarter: 2013Q2

REPORT INFORMATION
  Report Type: Spontaneous
  Country: JP (occurrence: JP)
  Receive Date: 20130409
  Receipt Date: 20130409
  Transmission Date: 20140414
  Serious: Yes (Other)
  Sender: FDA-Public Use
  Company Number: JP-PFIZER INC-2013090595

PATIENT
  Age: 64 Year
  Sex: Female
  Weight: 54 kg

DRUGS (6)
  1. LYRICA [Suspect]
     Indication: WOUND COMPLICATION
     Dosage: 75 MG, 2X/DAY
     Route: 048
     Dates: start: 20130301, end: 20130304
  2. VOLTAREN [Concomitant]
     Indication: WOUND COMPLICATION
     Dosage: 25 MG, 3X/DAY
     Route: 048
     Dates: start: 20130225, end: 20130301
  3. MUCOSTA [Concomitant]
     Indication: GASTRITIS
     Dosage: 100 MG, 3X/DAY
     Route: 048
     Dates: start: 20130225, end: 20130301
  4. LIPITOR [Concomitant]
     Indication: HYPERLIPIDAEMIA
     Dosage: 5 MG, 1X/DAY
     Route: 048
  5. BENZALIN [Concomitant]
     Indication: INSOMNIA
     Dosage: 5 MG, 1X/DAY
     Route: 048
  6. NORVASC [Concomitant]
     Indication: HYPERTENSION
     Dosage: 5 MG, 1X/DAY
     Route: 048

REACTIONS (2)
  - Diarrhoea [Recovered/Resolved]
  - Gastroenteritis norovirus [Unknown]
